FAERS Safety Report 6822725-0 (Version None)
Quarter: 2010Q3

REPORT INFORMATION
  Report Type: 
  Country: None (occurrence: None)
  Receive Date: 20100708
  Receipt Date: 20100628
  Transmission Date: 20110219
  Serious: Yes (Other)
  Sender: FDA-Public Use
  Company Number: DE-PFIZER INC-2010080053

PATIENT
  Age: 54 Year
  Sex: Female

DRUGS (1)
  1. FARMORUBICIN [Suspect]

REACTIONS (1)
  - DIVERTICULITIS [None]
